FAERS Safety Report 4500725-3 (Version None)
Quarter: 2004Q4

REPORT INFORMATION
  Report Type: 
  Country: None (occurrence: None)
  Receive Date: 20041109
  Receipt Date: 20041027
  Transmission Date: 20050328
  Serious: Yes (Death, Hospitalization)
  Sender: FDA-Public Use
  Company Number: US_0410106393

PATIENT
  Age: 55 Year
  Sex: Male
  Weight: 52 kg

DRUGS (17)
  1. GEMCITABINE HYDROCHLORIDE-IV (GEMCITABINE) [Suspect]
     Indication: NON-SMALL CELL LUNG CANCER
     Dosage: 1680 MG OTHER
     Route: 050
     Dates: start: 20040915, end: 20040922
  2. CARBOPLATIN [Suspect]
     Indication: NON-SMALL CELL LUNG CANCER
     Dosage: 785 MG OTHER
     Route: 050
     Dates: start: 20040915, end: 20040915
  3. TYLENOL (CAPLET) [Concomitant]
  4. ALBUTEROL [Concomitant]
  5. VICODIN [Concomitant]
  6. ATIVAN [Concomitant]
  7. PHENERGAN [Concomitant]
  8. MYLANTA [Concomitant]
  9. MS CONTIN [Concomitant]
  10. ZANTAC [Concomitant]
  11. CARDIZEM CD [Concomitant]
  12. MIRALAX [Concomitant]
  13. DECADRON (DECAMETHASONE SODIUM PHOSPHATE) [Concomitant]
  14. KYTRIL [Concomitant]
  15. ARANESP [Concomitant]
  16. DURAGESIC [Concomitant]
  17. MORPHINE [Concomitant]

REACTIONS (8)
  - ANAEMIA [None]
  - CHRONIC OBSTRUCTIVE AIRWAYS DISEASE [None]
  - HAEMOTHORAX [None]
  - MALIGNANT NEOPLASM PROGRESSION [None]
  - NON-SMALL CELL LUNG CANCER METASTATIC [None]
  - PLEURAL EFFUSION [None]
  - PULMONARY HAEMORRHAGE [None]
  - THROMBOCYTOPENIA [None]
